FAERS Safety Report 4536365-X (Version None)
Quarter: 2004Q4

REPORT INFORMATION
  Report Type: 
  Country: None (occurrence: None)
  Receive Date: 20041223
  Receipt Date: 20040824
  Transmission Date: 20050328
  Serious: No
  Sender: FDA-Public Use
  Company Number: US-GLAXOSMITHKLINE-A0523307A

PATIENT
  Sex: Male

DRUGS (2)
  1. FLONASE [Suspect]
     Indication: ILL-DEFINED DISORDER
     Dosage: 50MCG TWICE PER DAY
     Route: 045
     Dates: start: 20020101
  2. MULTIPLE MEDICATIONS [Concomitant]

REACTIONS (2)
  - BLOOD IRON INCREASED [None]
  - WEIGHT DECREASED [None]
